FAERS Safety Report 8735305 (Version 4)
Quarter: 2013Q2

REPORT INFORMATION
  Report Type: Report from Study
  Country: JP (occurrence: JP)
  Receive Date: 20120822
  Receipt Date: 20130610
  Transmission Date: 20140414
  Serious: Yes (Life-Threatening, Hospitalization)
  Sender: FDA-Public Use
  Company Number: JP-AMGEN-JPNSP2012052046

PATIENT
  Age: 65 Year
  Sex: Male
  Weight: 62 kg

DRUGS (13)
  1. DENOSUMAB [Suspect]
     Indication: METASTASES TO BONE
     Dosage: 120 MG, UNK
     Route: 058
     Dates: start: 20120712, end: 20120712
  2. DENOSUMAB [Suspect]
     Indication: PLASMA CELL MYELOMA
  3. BAKTAR [Concomitant]
     Indication: PROPHYLAXIS
     Dosage: UNK
     Route: 048
     Dates: start: 20120404, end: 20121125
  4. HERBESSER R [Concomitant]
     Indication: HYPERTENSION
     Dosage: UNK
     Route: 048
     Dates: start: 20120404, end: 20121125
  5. PARIET [Concomitant]
     Indication: GASTROOESOPHAGEAL REFLUX DISEASE
     Dosage: UNK
     Route: 048
     Dates: start: 20120404, end: 20121125
  6. NOVAMIN [Concomitant]
     Indication: NAUSEA
     Dosage: UNK
     Route: 048
     Dates: start: 20120404, end: 20121125
  7. EXJADE [Concomitant]
     Indication: IRON OVERLOAD
     Dosage: 125 MG, BID
     Route: 048
  8. THALED [Concomitant]
     Indication: PLASMA CELL MYELOMA
     Dosage: UNK UNK, AS NECESSARY
     Route: 048
     Dates: start: 20120410, end: 20121125
  9. TRAMAL [Concomitant]
     Indication: PAIN MANAGEMENT
     Dosage: 25 MG, QID
     Route: 048
     Dates: start: 20120628, end: 20120719
  10. OXYCODONE HYDROCHLORIDE [Concomitant]
     Indication: PAIN MANAGEMENT
     Dosage: UNK UNK, AS NECESSARY
     Dates: start: 20120712
  11. RENAGEL [Concomitant]
     Indication: HYPERPHOSPHATAEMIA
     Dosage: 750 MG, TID
     Route: 048
  12. ACICLOVIR [Concomitant]
     Dosage: UNK
     Route: 048
     Dates: start: 20120404, end: 20121125
  13. DECADRON [Concomitant]
     Dosage: UNK
     Route: 048
     Dates: start: 20120404, end: 20121125

REACTIONS (2)
  - Hypocalcaemia [Recovered/Resolved]
  - Cellulitis [Recovered/Resolved]
